FAERS Safety Report 6276379-5 (Version None)
Quarter: 2009Q3

REPORT INFORMATION
  Report Type: 
  Country: None (occurrence: None)
  Receive Date: 20090720
  Receipt Date: 20090703
  Transmission Date: 20100115
  Serious: Yes (Death)
  Sender: FDA-Public Use
  Company Number: A-CH2009-25783

PATIENT
  Age: 55 Year
  Sex: Female

DRUGS (1)
  1. TRACLEER [Suspect]
     Indication: PORTAL HYPERTENSION
     Dosage: ORAL
     Route: 048
     Dates: start: 20060714, end: 20070424

REACTIONS (3)
  - CARDIAC ARREST [None]
  - CARDIAC FAILURE ACUTE [None]
  - SEPSIS [None]
